FAERS Safety Report 9118850 (Version 2)
Quarter: 2013Q2

REPORT INFORMATION
  Report Type: Spontaneous
  Country: US (occurrence: US)
  Receive Date: 20130226
  Receipt Date: 20130403
  Transmission Date: 20140414
  Serious: No
  Sender: FDA-Public Use
  Company Number: US-BIOGENIDEC-2013BI015827

PATIENT
  Age: 56 Year
  Sex: Female

DRUGS (4)
  1. TYSABRI [Suspect]
     Indication: MULTIPLE SCLEROSIS
     Route: 042
     Dates: start: 20100505
  2. AVONEX [Concomitant]
  3. TORADOL [Concomitant]
     Indication: MYALGIA
     Route: 030
     Dates: start: 201209
  4. LEVAQUIN [Concomitant]
     Route: 042
     Dates: start: 201209

REACTIONS (13)
  - Myalgia [Not Recovered/Not Resolved]
  - Gait disturbance [Recovered/Resolved]
  - Hemiparesis [Unknown]
  - Cognitive disorder [Unknown]
  - Speech disorder [Unknown]
  - Back pain [Unknown]
  - Dysstasia [Unknown]
  - Dysphonia [Unknown]
  - Visual acuity reduced [Unknown]
  - Dyspnoea [Not Recovered/Not Resolved]
  - Fatigue [Not Recovered/Not Resolved]
  - Atypical pneumonia [Unknown]
  - Asthenia [Unknown]
